FAERS Safety Report 10630486 (Version 2)
Quarter: 2014Q4

REPORT INFORMATION
  Report Type: Spontaneous
  Country: US (occurrence: US)
  Receive Date: 20141205
  Receipt Date: 20141205
  Transmission Date: 20150529
  Serious: No
  Sender: FDA-Public Use
  Company Number: US-BRISTOL-MYERS SQUIBB COMPANY-21528377

PATIENT
  Age: 38 Year
  Sex: Female
  Weight: 58.96 kg

DRUGS (4)
  1. SYMLIN [Suspect]
     Active Substance: PRAMLINTIDE ACETATE
     Indication: TYPE 1 DIABETES MELLITUS
     Route: 058
     Dates: start: 2013
  2. BACTRIM [Concomitant]
     Active Substance: SULFAMETHOXAZOLE\TRIMETHOPRIM
  3. APIDRA [Concomitant]
     Active Substance: INSULIN GLULISINE
  4. PENICILLIN [Concomitant]
     Active Substance: PENICILLIN

REACTIONS (2)
  - Blood glucose increased [Recovered/Resolved]
  - Product quality issue [Unknown]
